FAERS Safety Report 9762397 (Version 1)
Quarter: 2013Q4

REPORT INFORMATION
  Report Type: Spontaneous
  Country: IE (occurrence: None)
  Receive Date: 20131213
  Receipt Date: 20131213
  Transmission Date: 20140711
  Serious: Yes (Other)
  Sender: FDA-Public Use
  Company Number: FK201305238

PATIENT
  Age: 55 Year
  Sex: Female

DRUGS (2)
  1. PIPERACILLIN/TAZOBACTAM ( MANUFACTURER UNKNOWN) ( PIPERACILLIN/TAZOBACTAM) (PIPERCILLIN/TAZOBACTAM) [Suspect]
     Indication: INFECTION
     Dosage: 4.5 GM, INTRAVENOUS ( NOT OTHERWISE SPECIFIED)
     Route: 042
  2. PIPERACILLIN/TAZOBACTAM ( MANUFACTURER UNKNOWN) ( PIPERACILLIN/TAZOBACTAM) (PIPERCILLIN/TAZOBACTAM) [Suspect]
     Indication: BODY TEMPERATURE INCREASED
     Dosage: 4.5 GM, INTRAVENOUS ( NOT OTHERWISE SPECIFIED)
     Route: 042

REACTIONS (2)
  - Unresponsive to stimuli [None]
  - Drug hypersensitivity [None]
